FAERS Safety Report 8537575-7 (Version None)
Quarter: 2012Q3

REPORT INFORMATION
  Report Type: 
  Country: None (occurrence: None)
  Receive Date: 20120725
  Receipt Date: 20120717
  Transmission Date: 20120928
  Serious: Yes (Other)
  Sender: FDA-Public Use
  Company Number: US-CELGENEUS-163-20785-12051510

PATIENT
  Sex: Female

DRUGS (5)
  1. THALOMID [Suspect]
     Dosage: 150 MILLIGRAM
     Route: 048
     Dates: start: 20120201
  2. THALOMID [Suspect]
     Dosage: 200 MILLIGRAM
     Route: 048
     Dates: start: 20120101
  3. THALOMID [Suspect]
     Indication: NEOPLASM
     Dosage: 100 MILLIGRAM
     Route: 048
     Dates: start: 20100301
  4. THALOMID [Suspect]
     Dosage: 150 MILLIGRAM
     Route: 048
     Dates: start: 20100901
  5. THALOMID [Suspect]
     Dosage: 200 MILLIGRAM
     Route: 048
     Dates: start: 20110101

REACTIONS (1)
  - GASTROINTESTINAL HAEMORRHAGE [None]
